FAERS Safety Report 6507249-2 (Version None)
Quarter: 2009Q4

REPORT INFORMATION
  Report Type: 
  Country: None (occurrence: None)
  Receive Date: 20091221
  Receipt Date: 20091216
  Transmission Date: 20100525
  Serious: Yes (Disabling)
  Sender: FDA-Public Use
  Company Number: PHHO2005MX14357

PATIENT
  Sex: Female
  Weight: 70 kg

DRUGS (8)
  1. DICLOFENAC [Suspect]
     Indication: ANTIINFLAMMATORY THERAPY
  2. STARLIX [Suspect]
     Dosage: LEVEL 1
     Dates: start: 20030203
  3. STARLIX [Suspect]
     Dosage: LEVEL 2
  4. PLACEBO PLACEBO [Suspect]
     Indication: CARDIOVASCULAR DISORDER
     Dosage: LEVEL 1
     Route: 048
     Dates: start: 20030203
  5. PLACEBO PLACEBO [Suspect]
     Dosage: LEVEL 2
     Route: 048
  6. PARACETAMOL [Suspect]
  7. NAPROXEN [Suspect]
  8. NSAID'S [Concomitant]
     Indication: FALL

REACTIONS (2)
  - ABDOMINAL PAIN UPPER [None]
  - GASTROOESOPHAGEAL REFLUX DISEASE [None]
